FAERS Safety Report 21990232 (Version 1)
Quarter: 2023Q1

REPORT INFORMATION
  Report Type: Spontaneous
  Country: US (occurrence: None)
  Receive Date: 20230213
  Receipt Date: 20230213
  Transmission Date: 20230418
  Serious: Yes (Hospitalization, Disabling, Other)
  Sender: FDA-Public Use
  Company Number: None

PATIENT
  Age: 80 Year
  Sex: Female

DRUGS (1)
  1. ARTIFICIAL TEARS LUBRICANT EYE DROPS (CARBOXYMETHYLCELLULOSE SODIUM) [Suspect]
     Active Substance: CARBOXYMETHYLCELLULOSE SODIUM
     Indication: Dry eye
     Dosage: OTHER QUANTITY : 6 6;?FREQUENCY : AS NEEDED;?
     Route: 047
     Dates: start: 20220101, end: 20230131

REACTIONS (2)
  - Eye infection [None]
  - Pseudomonas infection [None]

NARRATIVE: CASE EVENT DATE: 20220601
